FAERS Safety Report 8781735 (Version 2)
Quarter: 2012Q4

REPORT INFORMATION
  Report Type: 
  Country: US (occurrence: US)
  Receive Date: 20120913
  Receipt Date: 20120921
  Transmission Date: 20130627
  Serious: Yes (Other)
  Sender: FDA-Public Use
  Company Number: US-JNJFOC-20120904294

PATIENT
  Age: 55 Year
  Sex: Female
  Weight: 85 kg

DRUGS (2)
  1. STELARA [Suspect]
     Indication: PSORIASIS
     Dosage: for 1 1/2 years
     Route: 058
     Dates: start: 201103
  2. STELARA [Suspect]
     Indication: PSORIASIS
     Route: 058
     Dates: start: 20120905

REACTIONS (2)
  - Pustular psoriasis [Unknown]
  - Psoriasis [Unknown]
